FAERS Safety Report 5084129-3 (Version None)
Quarter: 2006Q3

REPORT INFORMATION
  Report Type: 
  Country: None (occurrence: None)
  Receive Date: 20060816
  Receipt Date: 20060804
  Transmission Date: 20061208
  Serious: Yes (Hospitalization)
  Sender: FDA-Public Use
  Company Number: 228343

PATIENT
  Age: 68 Year
  Sex: Male
  Weight: 84.4 kg

DRUGS (3)
  1. AVASTIN [Suspect]
     Indication: BLADDER CANCER
     Dates: start: 20060712
  2. GEMCITABINE [Suspect]
     Indication: BLADDER CANCER
     Dates: start: 20060712
  3. CISPLATIN [Suspect]
     Indication: BLADDER CANCER
     Dates: start: 20060712

REACTIONS (7)
  - ALANINE AMINOTRANSFERASE INCREASED [None]
  - ASPARTATE AMINOTRANSFERASE INCREASED [None]
  - FATIGUE [None]
  - FEBRILE NEUTROPENIA [None]
  - HAEMATOCRIT DECREASED [None]
  - HYPERHIDROSIS [None]
  - PLATELET COUNT DECREASED [None]
